FAERS Safety Report 15682788 (Version 1)
Quarter: 2018Q4

REPORT INFORMATION
  Report Type: Spontaneous
  Country: ES (occurrence: ES)
  Receive Date: 20181203
  Receipt Date: 20181203
  Transmission Date: 20190205
  Serious: Yes (Hospitalization)
  Sender: FDA-Public Use
  Company Number: ES-BAYER-2018-218599

PATIENT
  Age: 89 Year
  Sex: Female

DRUGS (2)
  1. ADIRO 100 MG [Suspect]
     Active Substance: ASPIRIN
     Dosage: UNK
     Route: 048
     Dates: start: 20150126, end: 20180818
  2. SINTROM [Interacting]
     Active Substance: ACENOCOUMAROL
     Indication: ATRIAL FLUTTER
     Dosage: UNK
     Route: 048
     Dates: start: 20180420, end: 20180818

REACTIONS (1)
  - Iron deficiency anaemia [Recovered/Resolved]

NARRATIVE: CASE EVENT DATE: 20180818
